FAERS Safety Report 18611814 (Version 5)
Quarter: 2021Q2

REPORT INFORMATION
  Report Type: Report from Study
  Country: None (occurrence: US)
  Receive Date: 20201214
  Receipt Date: 20210608
  Transmission Date: 20210717
  Serious: Yes (Other)
  Sender: FDA-Public Use
  Company Number: US-ABBVIE-20K-163-3684727-00

PATIENT
  Sex: Female
  Weight: 74.46 kg

DRUGS (12)
  1. METHOTREXATE. [Suspect]
     Active Substance: METHOTREXATE
     Indication: RHEUMATOID ARTHRITIS
     Dosage: EIGHT TABLETS OF 2.5 MILLIGRAMS
     Route: 048
     Dates: start: 201911
  2. FOLIC ACID. [Concomitant]
     Active Substance: FOLIC ACID
     Indication: VITAMIN SUPPLEMENTATION
  3. RINVOQ [Suspect]
     Active Substance: UPADACITINIB
     Indication: RHEUMATOID ARTHRITIS
     Route: 048
     Dates: start: 202001
  4. HYDROCODONE [Concomitant]
     Active Substance: HYDROCODONE
     Indication: PAIN
  5. MILK THISTLE [Concomitant]
     Active Substance: DIETARY SUPPLEMENT\HERBALS\MILK THISTLE
     Indication: PROPHYLAXIS
  6. LOSARTAN. [Concomitant]
     Active Substance: LOSARTAN
     Indication: HYPERTENSION
  7. ALPRAZOLAM. [Concomitant]
     Active Substance: ALPRAZOLAM
     Indication: ANXIETY
  8. METOPROLOL. [Concomitant]
     Active Substance: METOPROLOL
     Indication: HYPERTENSION
  9. RINVOQ [Suspect]
     Active Substance: UPADACITINIB
     Indication: OSTEOARTHRITIS
  10. PREDNISONE. [Suspect]
     Active Substance: PREDNISONE
     Indication: PRODUCT USED FOR UNKNOWN INDICATION
     Route: 048
     Dates: start: 201911
  11. PREDNISONE. [Suspect]
     Active Substance: PREDNISONE
     Dosage: DOSE INCREASED
     Route: 048
     Dates: start: 202105
  12. GABAPENTINE [Concomitant]
     Active Substance: GABAPENTIN
     Indication: PRODUCT USED FOR UNKNOWN INDICATION

REACTIONS (20)
  - Vision blurred [Not Recovered/Not Resolved]
  - Skin atrophy [Unknown]
  - Osteoarthritis [Not Recovered/Not Resolved]
  - Rheumatoid arthritis [Recovered/Resolved]
  - Feeling abnormal [Not Recovered/Not Resolved]
  - Erythema [Not Recovered/Not Resolved]
  - Eye discharge [Not Recovered/Not Resolved]
  - Rheumatoid arthritis [Not Recovered/Not Resolved]
  - Swelling face [Unknown]
  - Memory impairment [Not Recovered/Not Resolved]
  - Fungal skin infection [Recovered/Resolved]
  - Skin disorder [Not Recovered/Not Resolved]
  - Malaise [Unknown]
  - Visual impairment [Unknown]
  - Vitamin D decreased [Recovered/Resolved]
  - Mouth swelling [Unknown]
  - Blood cholesterol increased [Not Recovered/Not Resolved]
  - Drug ineffective [Not Recovered/Not Resolved]
  - Increased tendency to bruise [Not Recovered/Not Resolved]
  - Skin ulcer [Not Recovered/Not Resolved]

NARRATIVE: CASE EVENT DATE: 2020
